FAERS Safety Report 7946890-7 (Version None)
Quarter: 2011Q4

REPORT INFORMATION
  Report Type: 
  Country: None (occurrence: None)
  Receive Date: 20111129
  Receipt Date: 20111115
  Transmission Date: 20120403
  Serious: Yes (Hospitalization)
  Sender: FDA-Public Use
  Company Number: ES-MYLANLABS-2011S1024100

PATIENT
  Age: 49 Year
  Sex: Female
  Weight: 80 kg

DRUGS (2)
  1. CLONAZEPAM [Suspect]
     Route: 065
  2. VENLAFAXINE [Suspect]
     Route: 065

REACTIONS (1)
  - LIVER INJURY [None]
